FAERS Safety Report 6746583-8 (Version None)
Quarter: 2010Q2

REPORT INFORMATION
  Report Type: 
  Country: None (occurrence: None)
  Receive Date: 20100528
  Receipt Date: 20091215
  Transmission Date: 20101027
  Serious: No
  Sender: FDA-Public Use
  Company Number: US-ASTRAZENECA-2009SE31936

PATIENT
  Age: 51 Year
  Sex: Female

DRUGS (2)
  1. PRILOSEC OTC [Suspect]
     Dosage: 1 TABLET, 1 /DAY
     Route: 048
     Dates: start: 20090927, end: 20090930
  2. ANTIHYPERTENSIVES [Concomitant]
     Dosage: UNKNOWN

REACTIONS (2)
  - FEELING ABNORMAL [None]
  - NAUSEA [None]
